FAERS Safety Report 23982820 (Version 1)
Quarter: 2024Q2

REPORT INFORMATION
  Report Type: Spontaneous
  Country: US (occurrence: None)
  Receive Date: 20240617
  Receipt Date: 20240617
  Transmission Date: 20240716
  Serious: Yes (Life-Threatening, Disabling, Other)
  Sender: FDA-Public Use
  Company Number: None

PATIENT
  Age: 47 Year
  Sex: Female
  Weight: 108 kg

DRUGS (1)
  1. DROPERIDOL [Suspect]
     Active Substance: DROPERIDOL
     Indication: Nausea
     Dates: start: 20240513, end: 20240514

REACTIONS (9)
  - Feeling abnormal [None]
  - Syncope [None]
  - Palpitations [None]
  - Nervous system disorder [None]
  - Nerve injury [None]
  - Asthenia [None]
  - Dyspnoea [None]
  - Sleep disorder [None]
  - Insomnia [None]

NARRATIVE: CASE EVENT DATE: 20240513
